FAERS Safety Report 17350942 (Version 1)
Quarter: 2020Q1

REPORT INFORMATION
  Report Type: Spontaneous
  Country: US (occurrence: US)
  Receive Date: 20200130
  Receipt Date: 20200130
  Transmission Date: 20200409
  Serious: No
  Sender: FDA-Public Use
  Company Number: US-TEVA-2020-US-1172209

PATIENT
  Age: 63 Year
  Sex: Female

DRUGS (2)
  1. AUSTEDO [Suspect]
     Active Substance: DEUTETRABENAZINE
     Indication: TARDIVE DYSKINESIA
     Dosage: ONE AND A HALF 12 MG TABLETS IN THE MORNING AND TWO 12 MG TABLETS AT NIGH
     Route: 048
     Dates: start: 201909
  2. AUSTEDO [Suspect]
     Active Substance: DEUTETRABENAZINE
     Dosage: UNKNOWN DAILY
     Route: 048
     Dates: start: 201909

REACTIONS (7)
  - Excessive eye blinking [Unknown]
  - Dyskinesia [Unknown]
  - Wrong technique in product usage process [Unknown]
  - Extrasystoles [Not Recovered/Not Resolved]
  - Lacrimation increased [Unknown]
  - Feeling abnormal [Not Recovered/Not Resolved]
  - Therapeutic product effect incomplete [Unknown]

NARRATIVE: CASE EVENT DATE: 201909
